FAERS Safety Report 8916244 (Version 2)
Quarter: 2012Q4

REPORT INFORMATION
  Report Type: Report from Study
  Country: DE (occurrence: DE)
  Receive Date: 20121120
  Receipt Date: 20121128
  Transmission Date: 20130627
  Serious: Yes (Hospitalization)
  Sender: FDA-Public Use
  Company Number: DE-GLAXOSMITHKLINE-B0845892A

PATIENT
  Age: 51 Year
  Sex: Female
  Weight: 83 kg

DRUGS (7)
  1. LAPATINIB [Suspect]
     Indication: BREAST CANCER
     Dosage: 750MG Per day
     Route: 048
     Dates: start: 20121024
  2. MYOCET [Suspect]
     Indication: BREAST CANCER
     Dosage: 38.4MG Weekly
     Route: 042
     Dates: start: 20121024
  3. PACLITAXEL [Suspect]
     Indication: BREAST CANCER
     Dosage: 153.6MG Weekly
     Route: 042
     Dates: start: 20121024
  4. CARBOPLATIN [Suspect]
     Indication: BREAST CANCER
     Dosage: 251.7MG Weekly
     Route: 042
     Dates: start: 20121024
  5. TRASTUZUMAB [Suspect]
     Indication: BREAST CANCER
     Dosage: 688MG Cyclic
     Route: 042
     Dates: start: 20121024
  6. OLMETEC [Concomitant]
  7. METOPROLOL [Concomitant]

REACTIONS (1)
  - Febrile neutropenia [Recovered/Resolved]
